FAERS Safety Report 25978783 (Version 1)
Quarter: 2025Q4

REPORT INFORMATION
  Report Type: Spontaneous
  Country: ID (occurrence: ID)
  Receive Date: 20251030
  Receipt Date: 20251030
  Transmission Date: 20260117
  Serious: No
  Sender: ANI
  Company Number: ID-ANIPHARMA-031016

PATIENT
  Age: 35 Year
  Sex: Male

DRUGS (1)
  1. FLUVOXAMINE MALEATE [Suspect]
     Active Substance: FLUVOXAMINE MALEATE
     Indication: Product used for unknown indication
     Dosage: STRENGTH: 50MG

REACTIONS (2)
  - Feeling abnormal [Unknown]
  - Treatment noncompliance [Unknown]
